FAERS Safety Report 26060813 (Version 1)
Quarter: 2025Q4

REPORT INFORMATION
  Report Type: Spontaneous
  Country: CN (occurrence: CN)
  Receive Date: 20251118
  Receipt Date: 20251118
  Transmission Date: 20260119
  Serious: Yes (Hospitalization)
  Sender: COHERUS
  Company Number: CN-SHANGHAI JUNSHI BIOSCIENCES CO., LTD.-CN2025016499

PATIENT

DRUGS (3)
  1. TORIPALIMAB [Suspect]
     Active Substance: TORIPALIMAB
     Indication: Uterine cancer
     Dosage: 240 MG, D1
     Route: 041
     Dates: start: 20251025, end: 20251025
  2. ETOPOSIDE [Suspect]
     Active Substance: ETOPOSIDE
     Indication: Uterine cancer
     Dosage: 100 MG, D1-3
     Route: 041
     Dates: start: 20251025, end: 20251027
  3. CARBOPLATIN [Suspect]
     Active Substance: CARBOPLATIN
     Indication: Uterine cancer
     Dosage: 285 MG, D1-3
     Route: 041
     Dates: start: 20251025, end: 20251027

REACTIONS (1)
  - Myelosuppression [Not Recovered/Not Resolved]

NARRATIVE: CASE EVENT DATE: 20251104
